FAERS Safety Report 7176739-4 (Version None)
Quarter: 2010Q4

REPORT INFORMATION
  Report Type: 
  Country: None (occurrence: None)
  Receive Date: 20101215
  Receipt Date: 20101215
  Transmission Date: 20110411
  Serious: Yes (Life-Threatening)
  Sender: FDA-Public Use
  Company Number: None

PATIENT
  Age: 26 Year
  Sex: 0
  Weight: 65.7716 kg

DRUGS (2)
  1. REMICADE [Suspect]
     Dosage: IV DRIP
     Route: 041
     Dates: start: 20000101, end: 20080104
  2. MERCAPTOPURINE [Suspect]
     Dosage: PO
     Route: 048
     Dates: start: 20010406, end: 20080908

REACTIONS (2)
  - CARDIOMEGALY [None]
  - EJECTION FRACTION DECREASED [None]
